FAERS Safety Report 8740387 (Version 2)
Quarter: 2013Q4

REPORT INFORMATION
  Report Type: Spontaneous
  Country: US (occurrence: US)
  Receive Date: 20120823
  Receipt Date: 20131101
  Transmission Date: 20140711
  Serious: No
  Sender: FDA-Public Use
  Company Number: US-009507513-1208USA005629

PATIENT
  Sex: Male

DRUGS (2)
  1. FOSAMAX [Suspect]
     Indication: OSTEOPENIA
     Dosage: UNK, QW
     Dates: start: 20090810, end: 20110210
  2. ALENDRONATE SODIUM [Suspect]
     Dosage: UNK
     Dates: start: 20110210

REACTIONS (1)
  - Bone density decreased [Unknown]
